FAERS Safety Report 21539317 (Version 3)
Quarter: 2023Q2

REPORT INFORMATION
  Report Type: Report from Study
  Country: US (occurrence: US)
  Receive Date: 20221102
  Receipt Date: 20230615
  Transmission Date: 20230721
  Serious: Yes (Life-Threatening, Hospitalization, Other)
  Sender: FDA-Public Use
  Company Number: US-ABBVIE-4184227

PATIENT
  Age: 58 Year
  Sex: Male
  Weight: 99.79 kg

DRUGS (8)
  1. RINVOQ [Suspect]
     Active Substance: UPADACITINIB
     Indication: Rheumatoid arthritis
     Dosage: FORM STRENGTH: 15 MG
     Route: 048
     Dates: start: 20200609, end: 20220701
  2. RINVOQ [Suspect]
     Active Substance: UPADACITINIB
     Indication: Rheumatoid arthritis
     Dosage: FORM STRENGTH: 15 MG
     Route: 048
     Dates: start: 20221014
  3. Unknown Covid-19 Vaccine [Concomitant]
     Indication: COVID-19 immunisation
     Dosage: 4TH BOOSTER
     Route: 030
     Dates: start: 20220401, end: 20220401
  4. Unknown Covid-19 Vaccine [Concomitant]
     Indication: COVID-19 immunisation
     Dosage: 4TH BOOSTER
     Route: 030
     Dates: start: 20220401, end: 20220401
  5. Unknown Covid-19 Vaccine [Concomitant]
     Indication: COVID-19 immunisation
     Dosage: ONE IN ONCE
  6. NAPROXEN [Concomitant]
     Active Substance: NAPROXEN
     Indication: Product used for unknown indication
  7. PREDNISONE [Concomitant]
     Active Substance: PREDNISONE
     Indication: Product used for unknown indication
  8. ARAVA [Concomitant]
     Active Substance: LEFLUNOMIDE
     Indication: Arthritis

REACTIONS (6)
  - Spinal operation [Not Recovered/Not Resolved]
  - Lymphoedema [Recovering/Resolving]
  - Escherichia bacteraemia [Not Recovered/Not Resolved]
  - Rheumatoid arthritis [Not Recovered/Not Resolved]
  - Surgical failure [Recovering/Resolving]
  - Inflammation [Not Recovered/Not Resolved]

NARRATIVE: CASE EVENT DATE: 20220713
